FAERS Safety Report 7827292-0 (Version None)
Quarter: 2011Q4

REPORT INFORMATION
  Report Type: 
  Country: None (occurrence: None)
  Receive Date: 20111020
  Receipt Date: 20111014
  Transmission Date: 20120403
  Serious: Yes (Hospitalization)
  Sender: FDA-Public Use
  Company Number: JP-PFIZER INC-2011191063

PATIENT
  Age: 80 Year
  Sex: Male
  Weight: 55 kg

DRUGS (15)
  1. PRORENAL [Concomitant]
     Indication: SPINAL COLUMN STENOSIS
     Dosage: 15 UG, 3X/DAY
     Route: 048
     Dates: start: 20110616, end: 20110620
  2. PRORENAL [Concomitant]
     Dosage: 5 UG, 3X/DAY
     Route: 048
     Dates: start: 20110713
  3. PREDNISOLONE [Concomitant]
     Indication: PULMONARY FIBROSIS
     Dosage: 15 MG, 3X/DAY
     Route: 048
  4. LYRICA [Suspect]
     Indication: PAIN
     Dosage: 75 MG, 2X/DAY
     Route: 048
     Dates: start: 20110713, end: 20110720
  5. ROHYPNOL [Concomitant]
     Indication: INSOMNIA
     Dosage: 1 MG, 1X/DAY
     Route: 048
  6. MUCOSTA [Concomitant]
     Indication: GASTRITIS
     Dosage: 200 MG, 2X/DAY
     Route: 048
  7. LYRICA [Suspect]
     Indication: HYPOAESTHESIA
     Dosage: 75 MG, 2X/DAY
     Route: 048
     Dates: start: 20110616, end: 20110620
  8. RISEDRONATE SODIUM [Concomitant]
     Indication: OSTEOPOROSIS
     Dosage: 17.5 MG, WEEKLY
     Route: 048
     Dates: start: 20110713
  9. LIMAPROST [Suspect]
     Indication: HYPOAESTHESIA
     Dosage: 15 UG, 3X/DAY
     Dates: start: 20110616, end: 20110620
  10. LIMAPROST [Suspect]
     Dosage: 15 UG, 3X/DAY
     Dates: start: 20110713, end: 20110720
  11. HIRNAMIN [Concomitant]
     Indication: INSOMNIA
     Dosage: 50 MG, 1X/DAY
     Route: 048
  12. VERAPAMIL HCL [Concomitant]
     Indication: ATRIAL FLUTTER
     Dosage: 80 MG, 2X/DAY
     Route: 048
  13. AMOBAN [Concomitant]
     Indication: INSOMNIA
     Dosage: 10 MG, 1X/DAY
     Route: 048
  14. DIGOXIN [Concomitant]
     Indication: ATRIAL FLUTTER
     Dosage: 0.125 MG, 1X/DAY
     Route: 048
  15. LYRICA [Suspect]
     Indication: SPINAL COLUMN STENOSIS

REACTIONS (1)
  - PNEUMONIA ASPIRATION [None]
